FAERS Safety Report 14656208 (Version 2)
Quarter: 2018Q2

REPORT INFORMATION
  Report Type: Spontaneous
  Country: FR (occurrence: FR)
  Receive Date: 20180319
  Receipt Date: 20180430
  Transmission Date: 20180711
  Serious: Yes (Hospitalization)
  Sender: FDA-Public Use
  Company Number: FR-JNJFOC-20180322948

PATIENT
  Age: 69 Year
  Sex: Female
  Weight: 101 kg

DRUGS (17)
  1. TRAMADOL HYDROCHLORIDE. [Suspect]
     Active Substance: TRAMADOL HYDROCHLORIDE
     Indication: GAIT DISTURBANCE
     Route: 048
     Dates: end: 20171115
  2. NOVORAPID [Concomitant]
     Active Substance: INSULIN ASPART
     Route: 065
  3. ATORVASTATIN [Concomitant]
     Active Substance: ATORVASTATIN
     Route: 065
  4. LYRICA [Concomitant]
     Active Substance: PREGABALIN
     Route: 065
  5. VICTOZA [Concomitant]
     Active Substance: LIRAGLUTIDE
     Route: 065
  6. ECONAZOLE [Concomitant]
     Active Substance: ECONAZOLE
     Route: 065
  7. METFORMINE [Concomitant]
     Active Substance: METFORMIN HYDROCHLORIDE
     Route: 065
  8. TOUJEO [Concomitant]
     Active Substance: INSULIN GLARGINE
     Route: 065
  9. TRAMADOL HYDROCHLORIDE. [Suspect]
     Active Substance: TRAMADOL HYDROCHLORIDE
     Indication: GAIT DISTURBANCE
     Route: 048
     Dates: end: 20171115
  10. PRAZEPAM [Suspect]
     Active Substance: PRAZEPAM
     Indication: DEPRESSION
     Route: 048
     Dates: end: 20171115
  11. FUROSEMIDE. [Concomitant]
     Active Substance: FUROSEMIDE
     Route: 065
  12. KARDEGIC [Concomitant]
     Active Substance: ASPIRIN DL-LYSINE
     Route: 065
  13. DOLIPRANE [Concomitant]
     Active Substance: ACETAMINOPHEN
     Route: 065
  14. MIANSERINE [Suspect]
     Active Substance: MIANSERIN HYDROCHLORIDE
     Indication: DEPRESSION
     Route: 048
     Dates: end: 20171101
  15. TERCIAN [Suspect]
     Active Substance: CYAMEMAZINE
     Indication: DEPRESSION
     Route: 048
     Dates: end: 20171121
  16. ZOPICLONE [Concomitant]
     Active Substance: ZOPICLONE
     Route: 065
  17. VERAPAMIL [Concomitant]
     Active Substance: VERAPAMIL HYDROCHLORIDE
     Route: 065

REACTIONS (1)
  - Dysphagia [Recovered/Resolved]

NARRATIVE: CASE EVENT DATE: 201710
